FAERS Safety Report 8179053-3 (Version None)
Quarter: 2012Q1

REPORT INFORMATION
  Report Type: 
  Country: None (occurrence: None)
  Receive Date: 20120302
  Receipt Date: 20120227
  Transmission Date: 20120608
  Serious: Yes (Other)
  Sender: FDA-Public Use
  Company Number: DE-ROCHE-1043895

PATIENT
  Age: 75 Year
  Sex: Female

DRUGS (4)
  1. AVASTIN [Suspect]
     Indication: COLON CANCER
     Dates: start: 20111201
  2. OXALIPLATIN [Suspect]
     Indication: COLON CANCER
     Dates: start: 20111201
  3. LEUCOVORIN CALCIUM [Suspect]
     Indication: COLON CANCER
     Dates: start: 20111201
  4. FLUOROURACIL [Suspect]
     Indication: COLON CANCER

REACTIONS (3)
  - VASCULAR SHUNT [None]
  - DYSPNOEA [None]
  - HYPOXIA [None]
